FAERS Safety Report 5093161-5 (Version None)
Quarter: 2006Q3

REPORT INFORMATION
  Report Type: 
  Country: None (occurrence: None)
  Receive Date: 20060828
  Receipt Date: 20060815
  Transmission Date: 20061208
  Serious: Yes (Other)
  Sender: FDA-Public Use
  Company Number: GXKR2006GB04753

PATIENT
  Age: 54 Year
  Sex: Male
  Weight: 48.9 kg

DRUGS (7)
  1. FOLIC ACID [Suspect]
     Indication: FOLATE DEFICIENCY
     Dosage: 5 MG, ORAL
     Route: 048
     Dates: start: 20060705, end: 20060705
  2. VALPROATE SODIUM [Concomitant]
  3. FERROUS GLUCONATE [Concomitant]
  4. OMEPRAZOLE [Concomitant]
  5. PARACETAMOL [Concomitant]
  6. RAMIPRIL [Concomitant]
  7. TEGRETOL [Concomitant]

REACTIONS (6)
  - BLOOD PRESSURE FLUCTUATION [None]
  - ERYTHEMA [None]
  - OEDEMA PERIPHERAL [None]
  - TACHYCARDIA [None]
  - URTICARIA [None]
  - VOMITING [None]
